FAERS Safety Report 10613431 (Version 3)
Quarter: 2015Q1

REPORT INFORMATION
  Report Type: Spontaneous
  Country: US (occurrence: US)
  Receive Date: 20141128
  Receipt Date: 20150129
  Transmission Date: 20150720
  Serious: Yes (Other)
  Sender: FDA-Public Use
  Company Number: US-AMGEN-USASP2014092206

PATIENT

DRUGS (1)
  1. PROCRIT [Suspect]
     Active Substance: ERYTHROPOIETIN
     Indication: PRODUCT USED FOR UNKNOWN INDICATION
     Dosage: 120000 UNITS PER WEEK OF PROCRIT EVERY TWO WEEKS
     Route: 065

REACTIONS (2)
  - Myelodysplastic syndrome [Unknown]
  - Serum ferritin abnormal [Unknown]
